FAERS Safety Report 6082974-9 (Version None)
Quarter: 2009Q1

REPORT INFORMATION
  Report Type: 
  Country: None (occurrence: None)
  Receive Date: 20090218
  Receipt Date: 20090213
  Transmission Date: 20090719
  Serious: Yes (Life-Threatening)
  Sender: FDA-Public Use
  Company Number: AT-B.I. PHARMACEUTICALS,INC./RIDGEFIELD-2009-AP-00027AP

PATIENT
  Age: 76 Year
  Sex: Female

DRUGS (3)
  1. SIFROL [Suspect]
     Indication: PARKINSON'S DISEASE
     Dosage: 1/2-0-1/2
     Route: 048
     Dates: end: 20081209
  2. MADOPAR [Concomitant]
     Indication: PARKINSON'S DISEASE
     Dosage: 200 MG/50MG - TABLETS, 3 X DAILY
  3. CITALOPRAM HYDROBROMID [Concomitant]
     Indication: DEPRESSION
     Dosage: 1-0-0

REACTIONS (4)
  - FALL [None]
  - FRACTURE [None]
  - HALLUCINATION [None]
  - MULTIPLE FRACTURES [None]
